FAERS Safety Report 4459391-8 (Version None)
Quarter: 2004Q3

REPORT INFORMATION
  Report Type: 
  Country: None (occurrence: None)
  Receive Date: 20040927
  Receipt Date: 20040916
  Transmission Date: 20050211
  Serious: Yes (Other)
  Sender: FDA-Public Use
  Company Number: PHBS2004JP12413

PATIENT
  Age: 48 Year
  Sex: Female

DRUGS (1)
  1. DIOVAN [Suspect]
     Dosage: 80 MG/DAY
     Route: 048

REACTIONS (3)
  - CONJUNCTIVITIS [None]
  - SKIN LESION [None]
  - STEVENS-JOHNSON SYNDROME [None]
